FAERS Safety Report 4936093-2 (Version None)
Quarter: 2006Q1

REPORT INFORMATION
  Report Type: 
  Country: None (occurrence: None)
  Receive Date: 20060307
  Receipt Date: 20051011
  Transmission Date: 20060701
  Serious: No
  Sender: FDA-Public Use
  Company Number: US-GLAXOSMITHKLINE-A0577862A

PATIENT
  Age: 80 Year
  Sex: Female

DRUGS (9)
  1. REQUIP [Suspect]
     Indication: PARKINSON'S DISEASE
     Dosage: 3MG FOUR TIMES PER DAY
     Route: 048
     Dates: start: 20030101
  2. L-DOPA [Concomitant]
  3. FUROSEMIDE [Concomitant]
  4. LIPITOR [Concomitant]
  5. LISINOPRIL [Concomitant]
  6. METFORMIN [Concomitant]
  7. ASPIRIN [Concomitant]
  8. VITAMIN B6 [Concomitant]
  9. IBUPROFEN [Concomitant]

REACTIONS (1)
  - EYE DISORDER [None]
